FAERS Safety Report 9917588 (Version 3)
Quarter: 2015Q3

REPORT INFORMATION
  Report Type: Spontaneous
  Country: US (occurrence: US)
  Receive Date: 20140221
  Receipt Date: 20150817
  Transmission Date: 20151125
  Serious: No
  Sender: FDA-Public Use
  Company Number: US-GILEAD-2014-0094886

PATIENT
  Age: 82 Year
  Sex: Female

DRUGS (12)
  1. PRADAXA [Concomitant]
     Active Substance: DABIGATRAN ETEXILATE MESYLATE
  2. VESICARE [Concomitant]
     Active Substance: SOLIFENACIN SUCCINATE
  3. CITRACAL                           /00751520/ [Concomitant]
  4. COSOPT [Concomitant]
     Active Substance: DORZOLAMIDE HYDROCHLORIDE\TIMOLOL MALEATE
  5. ZYRTEC [Concomitant]
     Active Substance: CETIRIZINE HYDROCHLORIDE
  6. LETAIRIS [Suspect]
     Active Substance: AMBRISENTAN
     Indication: PULMONARY ARTERIAL HYPERTENSION
     Dosage: UNK
     Route: 065
     Dates: start: 20120119
  7. CELEBREX [Concomitant]
     Active Substance: CELECOXIB
  8. FLUTICASONE [Concomitant]
     Active Substance: FLUTICASONE\FLUTICASONE PROPIONATE
  9. XALATAN [Concomitant]
     Active Substance: LATANOPROST
  10. TORSEMIDE. [Concomitant]
     Active Substance: TORSEMIDE
  11. ATACAND [Concomitant]
     Active Substance: CANDESARTAN CILEXETIL
  12. VITAMIN D [Concomitant]
     Active Substance: CHOLECALCIFEROL

REACTIONS (1)
  - Oedema peripheral [Not Recovered/Not Resolved]
